FAERS Safety Report 8507154-6 (Version None)
Quarter: 2012Q3

REPORT INFORMATION
  Report Type: 
  Country: None (occurrence: None)
  Receive Date: 20120712
  Receipt Date: 20120709
  Transmission Date: 20120928
  Serious: Yes (Hospitalization, Other)
  Sender: FDA-Public Use
  Company Number: US-PFIZER INC-2012164313

PATIENT
  Sex: Male

DRUGS (1)
  1. DILANTIN-125 [Suspect]
     Dosage: 100 MG IN MORNING AND 200 MG AT BEDTIME

REACTIONS (2)
  - IMPAIRED WORK ABILITY [None]
  - BACK DISORDER [None]
